FAERS Safety Report 4507869-0 (Version None)
Quarter: 2004Q4

REPORT INFORMATION
  Report Type: 
  Country: None (occurrence: None)
  Receive Date: 20041123
  Receipt Date: 20041115
  Transmission Date: 20050328
  Serious: Yes (Disabling)
  Sender: FDA-Public Use
  Company Number: US-MERCK-0411USA02526

PATIENT
  Age: 80 Year
  Sex: Male

DRUGS (7)
  1. ZOCOR [Suspect]
     Indication: BLOOD CHOLESTEROL INCREASED
     Route: 048
  2. GLYBURIDE AND METFORMIN HYDROCHLORIDE [Concomitant]
     Route: 065
  3. METOPROLOL [Concomitant]
     Route: 065
  4. DIGOXIN [Concomitant]
     Route: 065
  5. ACCUPRIL [Concomitant]
     Route: 065
  6. MECLIZINE [Concomitant]
     Route: 065
  7. OMEPRAZOLE [Concomitant]
     Route: 065

REACTIONS (1)
  - PAIN IN JAW [None]
